FAERS Safety Report 5128821-0 (Version None)
Quarter: 2006Q4

REPORT INFORMATION
  Report Type: 
  Country: None (occurrence: None)
  Receive Date: 20061011
  Receipt Date: 20060928
  Transmission Date: 20070319
  Serious: Yes (Death, Hospitalization)
  Sender: FDA-Public Use
  Company Number: 2006121177

PATIENT
  Sex: Male

DRUGS (4)
  1. CELEBREX [Suspect]
     Dates: start: 20010601, end: 20020101
  2. CELEBREX [Suspect]
     Dates: start: 20020101, end: 20031128
  3. BEXTRA [Suspect]
     Dates: start: 20020101, end: 20031128
  4. VIOXX [Suspect]
     Dates: start: 19990601, end: 20010501

REACTIONS (2)
  - CEREBROVASCULAR ACCIDENT [None]
  - MYOCARDIAL INFARCTION [None]
